FAERS Safety Report 20439589 (Version 1)
Quarter: 2022Q1

REPORT INFORMATION
  Report Type: Spontaneous
  Country: US (occurrence: None)
  Receive Date: 20220205
  Receipt Date: 20220205
  Transmission Date: 20220423
  Serious: Yes (Hospitalization)
  Sender: FDA-Public Use
  Company Number: None

PATIENT
  Sex: Female
  Weight: 92.4 kg

DRUGS (1)
  1. ADO-TRASTUZUMAB EMTANSINE [Suspect]
     Active Substance: ADO-TRASTUZUMAB EMTANSINE

REACTIONS (3)
  - Seizure [None]
  - Metastases to central nervous system [None]
  - Lymphocyte count decreased [None]

NARRATIVE: CASE EVENT DATE: 20220123
